FAERS Safety Report 10423125 (Version 2)
Quarter: 2014Q3

REPORT INFORMATION
  Report Type: Report from Study
  Country: JP (occurrence: JP)
  Receive Date: 20140902
  Receipt Date: 20140915
  Transmission Date: 20150326
  Serious: Yes (Death, Disabling)
  Sender: FDA-Public Use
  Company Number: JP-ROCHE-1456293

PATIENT
  Age: 35 Year
  Sex: Male

DRUGS (34)
  1. ACTEMRA [Suspect]
     Active Substance: TOCILIZUMAB
     Indication: CASTLEMAN^S DISEASE
     Route: 041
     Dates: start: 20050908, end: 20051115
  2. HALCION [Concomitant]
     Active Substance: TRIAZOLAM
     Indication: INSOMNIA
     Route: 048
  3. ACTEMRA [Suspect]
     Active Substance: TOCILIZUMAB
     Route: 041
     Dates: start: 20070705, end: 20070719
  4. RINDERON V [Suspect]
     Active Substance: BETAMETHASONE VALERATE
     Route: 048
     Dates: start: 20080703, end: 20080716
  5. DANTRIUM [Concomitant]
     Active Substance: DANTROLENE SODIUM
     Indication: SPINAL OSTEOARTHRITIS
     Route: 065
     Dates: start: 20070208, end: 20070221
  6. GASTER [Concomitant]
     Active Substance: FAMOTIDINE
     Route: 065
     Dates: start: 20070502, end: 20070516
  7. ACTEMRA [Suspect]
     Active Substance: TOCILIZUMAB
     Route: 041
     Dates: start: 20071101, end: 20080207
  8. ACTEMRA [Suspect]
     Active Substance: TOCILIZUMAB
     Route: 041
     Dates: start: 20080214, end: 201408
  9. ZYLORIC [Concomitant]
     Active Substance: ALLOPURINOL
     Route: 065
     Dates: end: 20100630
  10. LOXONIN [Concomitant]
     Active Substance: LOXOPROFEN SODIUM
     Route: 048
     Dates: start: 20060727, end: 20070501
  11. MYONAL (JAPAN) [Concomitant]
     Active Substance: EPERISONE HYDROCHLORIDE
     Route: 048
     Dates: start: 20071213, end: 20080206
  12. MEILAX [Concomitant]
     Active Substance: ETHYL LOFLAZEPATE
     Indication: INSOMNIA
     Route: 048
  13. ACTEMRA [Suspect]
     Active Substance: TOCILIZUMAB
     Route: 041
     Dates: start: 20051201, end: 20070628
  14. RINDERON V [Suspect]
     Active Substance: BETAMETHASONE VALERATE
     Route: 048
     Dates: start: 20080605, end: 20080702
  15. LOXONIN [Concomitant]
     Active Substance: LOXOPROFEN SODIUM
     Route: 048
     Dates: start: 20070502, end: 20080305
  16. CONSTAN [Concomitant]
     Active Substance: ALPRAZOLAM
     Route: 048
     Dates: start: 20071129
  17. MYONAL (JAPAN) [Concomitant]
     Active Substance: EPERISONE HYDROCHLORIDE
     Indication: SPINAL OSTEOARTHRITIS
     Route: 048
     Dates: start: 20070322, end: 20070516
  18. SERENACE [Concomitant]
     Active Substance: HALOPERIDOL
     Indication: INSOMNIA
     Route: 048
     Dates: start: 20080515
  19. ACTEMRA [Suspect]
     Active Substance: TOCILIZUMAB
     Route: 041
     Dates: start: 20070913, end: 20070927
  20. ACTEMRA [Suspect]
     Active Substance: TOCILIZUMAB
     Route: 041
     Dates: start: 20071018, end: 20071018
  21. PERSANTIN [Concomitant]
     Active Substance: DIPYRIDAMOLE
     Route: 048
  22. ACTEMRA [Suspect]
     Active Substance: TOCILIZUMAB
     Route: 041
     Dates: start: 20070830, end: 20070830
  23. SOSEGON [Concomitant]
     Active Substance: PENTAZOCINE
     Route: 048
     Dates: start: 20070531
  24. BENET [Concomitant]
     Active Substance: RISEDRONIC ACID
     Route: 048
  25. ACTEMRA [Suspect]
     Active Substance: TOCILIZUMAB
     Route: 041
     Dates: start: 20070802, end: 20070816
  26. RINDERON V [Suspect]
     Active Substance: BETAMETHASONE VALERATE
     Indication: CASTLEMAN^S DISEASE
     Route: 048
     Dates: start: 20051103, end: 20051117
  27. RINDERON V [Suspect]
     Active Substance: BETAMETHASONE VALERATE
     Route: 048
     Dates: start: 20051118, end: 20080604
  28. LOXONIN [Concomitant]
     Active Substance: LOXOPROFEN SODIUM
     Route: 048
     Dates: end: 20060726
  29. PURSENNID [Concomitant]
     Active Substance: SENNOSIDES A AND B CALCIUM
     Indication: CONSTIPATION
     Route: 048
     Dates: start: 20051117, end: 20081128
  30. ALFAROL [Concomitant]
     Active Substance: ALFACALCIDOL
     Route: 048
     Dates: end: 20100722
  31. RINDERON V [Suspect]
     Active Substance: BETAMETHASONE VALERATE
     Route: 048
     Dates: start: 20080717
  32. ZYLORIC [Concomitant]
     Active Substance: ALLOPURINOL
     Indication: HYPERURICAEMIA
     Route: 065
  33. BAKTAR [Concomitant]
     Active Substance: SULFAMETHOXAZOLE\TRIMETHOPRIM
     Indication: PROPHYLAXIS
     Route: 048
     Dates: start: 20061005, end: 20070501
  34. CONSTAN [Concomitant]
     Active Substance: ALPRAZOLAM
     Indication: INSOMNIA
     Route: 048

REACTIONS (15)
  - Hypertension [Recovering/Resolving]
  - Dialysis [Recovered/Resolved]
  - Palpitations [Recovered/Resolved]
  - Pyrexia [Recovered/Resolved]
  - Pharyngitis [Recovered/Resolved]
  - Hypertension [Not Recovered/Not Resolved]
  - Anal abscess [Recovered/Resolved]
  - Blood urea increased [Not Recovered/Not Resolved]
  - Lymphadenitis [Recovered/Resolved]
  - Completed suicide [Fatal]
  - Renal failure chronic [Not Recovered/Not Resolved]
  - Myalgia [Recovering/Resolving]
  - Headache [Not Recovered/Not Resolved]
  - Heart rate irregular [Recovered/Resolved]
  - Blood creatinine increased [Not Recovered/Not Resolved]

NARRATIVE: CASE EVENT DATE: 20050908
